FAERS Safety Report 8447784 (Version 2)
Quarter: 2013Q2

REPORT INFORMATION
  Report Type: Spontaneous
  Country: US (occurrence: None)
  Receive Date: 20120104
  Receipt Date: 20120508
  Transmission Date: 20140414
  Serious: Yes (Other)
  Sender: FDA-Public Use
  Company Number: 2011HGS-002641

PATIENT
  Age: 59 Year
  Sex: Male
  Weight: 108.86 kg

DRUGS (10)
  1. BENLYSTA [Suspect]
     Indication: SYSTEMIC LUPUS ERYTHEMATOSUS
     Dosage: 10 MG/KG, 1 IN 4 WK, INTRAVENOUS DRIP
     Route: 041
     Dates: start: 20111012, end: 20111012
  2. PREDNISONE (PREDNISONE )(PREDNISONE) [Concomitant]
  3. LOSARTAN (LOSARTAN) [Concomitant]
  4. LEFLUNOMIDE (LEFLUNOMIDE ) (LEFLUNOMIDE) [Concomitant]
  5. ACTOS (PIOGLITAZONE HYDROCHLORIDE)(PIOGLITAZONE HYDROCHLORIDE) [Concomitant]
  6. FUROSEMIDE (FUROSEMIDE) (FUROSEMIDE) [Concomitant]
  7. SIMVASTATIN (SIMVASTATIN) (SIMVASTATIN) [Concomitant]
  8. ZOLPIDEM (ZOLPIDEM)(ZOLPIDEM) [Concomitant]
  9. ASPIRIN (ACETYLSALICYLIC ACID)(ACETYLSALICYLIC ACID) [Concomitant]
  10. LANTUS (INSULIN GLARGINE)(INSULIN GLARGINE) [Concomitant]

REACTIONS (10)
  - HYPERSENSITIVITY [None]
  - EYE SWELLING [None]
  - THROAT IRRITATION [None]
  - COUGH [None]
  - HYPOAESTHESIA ORAL [None]
  - LIP SWELLING [None]
  - OEDEMA PERIPHERAL [None]
  - RASH GENERALISED [None]
  - DYSPNOEA [None]
  - HYPOTENSION [None]
